FAERS Safety Report 5979578-2 (Version None)
Quarter: 2008Q4

REPORT INFORMATION
  Report Type: 
  Country: None (occurrence: None)
  Receive Date: 20081204
  Receipt Date: 20081125
  Transmission Date: 20090506
  Serious: Yes (Other)
  Sender: FDA-Public Use
  Company Number: US-AMGEN-QUU267012

PATIENT
  Sex: Male

DRUGS (6)
  1. ENBREL [Suspect]
     Indication: PSORIASIS
     Route: 058
     Dates: start: 20071103, end: 20080225
  2. ENBREL [Suspect]
     Indication: PSORIATIC ARTHROPATHY
  3. RAPTIVA [Concomitant]
  4. KENALOG [Concomitant]
     Dates: start: 20070723
  5. TOPICORTE [Concomitant]
     Dates: start: 20070723
  6. UNSPECIFIED MEDICATION [Concomitant]
     Dates: start: 19971129, end: 20040924

REACTIONS (8)
  - DIABETES MELLITUS [None]
  - INJECTION SITE IRRITATION [None]
  - JOINT SWELLING [None]
  - NASOPHARYNGITIS [None]
  - PROSTATE CANCER [None]
  - PSORIASIS [None]
  - PSORIATIC ARTHROPATHY [None]
  - STRESS [None]
